FAERS Safety Report 15393397 (Version 1)
Quarter: 2018Q3

REPORT INFORMATION
  Report Type: Report from Study
  Country: US (occurrence: US)
  Receive Date: 20180917
  Receipt Date: 20180917
  Transmission Date: 20181010
  Serious: Yes (Hospitalization)
  Sender: FDA-Public Use
  Company Number: US-GILEAD-2018-0354556

PATIENT
  Age: 63 Year
  Sex: Male

DRUGS (6)
  1. AMBRISENTAN [Suspect]
     Active Substance: AMBRISENTAN
     Dosage: 10 MG, QD
     Route: 065
     Dates: start: 20180718
  2. ORENITRAM [Concomitant]
     Active Substance: TREPROSTINIL
  3. COUMADIN [Concomitant]
     Active Substance: WARFARIN SODIUM
  4. AMBRISENTAN [Suspect]
     Active Substance: AMBRISENTAN
     Indication: PRODUCT USED FOR UNKNOWN INDICATION
     Dosage: 5 MG, QD
     Route: 065
     Dates: start: 20180822
  5. AMBRISENTAN [Suspect]
     Active Substance: AMBRISENTAN
     Dosage: 5 UNK, UNK
     Route: 065
  6. ADCIRCA [Concomitant]
     Active Substance: TADALAFIL

REACTIONS (4)
  - Dyspnoea [Unknown]
  - Vision blurred [Unknown]
  - Nasal congestion [Unknown]
  - Fatigue [Unknown]
